FAERS Safety Report 9730337 (Version 1)
Quarter: 2013Q4

REPORT INFORMATION
  Report Type: Spontaneous
  Country: AU (occurrence: AU)
  Receive Date: 20131204
  Receipt Date: 20131204
  Transmission Date: 20140711
  Serious: Yes (Other)
  Sender: FDA-Public Use
  Company Number: AU-ROCHE-1307033

PATIENT
  Age: 70 Year
  Sex: Male

DRUGS (4)
  1. INTERFERON ALFA-2A [Suspect]
     Indication: PRODUCT USED FOR UNKNOWN INDICATION
     Route: 065
  2. OCTREOTIDE [Suspect]
     Indication: PANCREATIC NEUROENDOCRINE TUMOUR
     Route: 065
     Dates: start: 2003
  3. OCTREOTIDE [Suspect]
     Dosage: DOSE INCREASED
     Route: 065
  4. 5-FU [Suspect]
     Indication: PRODUCT USED FOR UNKNOWN INDICATION
     Route: 065

REACTIONS (13)
  - Flushing [Unknown]
  - Pneumonitis [Unknown]
  - Mucosal inflammation [Unknown]
  - Renal impairment [Unknown]
  - Neuropathy peripheral [Unknown]
  - Diarrhoea [Unknown]
  - Small intestinal obstruction [Recovered/Resolved]
  - Abdominal mass [Unknown]
  - Metastases to perineum [Unknown]
  - Metastasis [Unknown]
  - Carcinoid syndrome [Unknown]
  - Mucosal inflammation [Unknown]
  - Palmar-plantar erythrodysaesthesia syndrome [Unknown]
